FAERS Safety Report 4340018-0 (Version None)
Quarter: 2004Q2

REPORT INFORMATION
  Report Type: 
  Country: None (occurrence: None)
  Receive Date: 20040416
  Receipt Date: 20040405
  Transmission Date: 20050107
  Serious: Yes (Death, Other)
  Sender: FDA-Public Use
  Company Number: BE-BRISTOL-MYERS SQUIBB COMPANY-12554580

PATIENT

DRUGS (1)
  1. CEFEPIME FOR INJ [Suspect]
     Route: 042

REACTIONS (2)
  - DEATH [None]
  - NEUROTOXICITY [None]
